FAERS Safety Report 6342130-3 (Version None)
Quarter: 2009Q3

REPORT INFORMATION
  Report Type: 
  Country: None (occurrence: None)
  Receive Date: 20090904
  Receipt Date: 20090904
  Transmission Date: 20100115
  Serious: Yes (Death)
  Sender: FDA-Public Use
  Company Number: None

PATIENT
  Age: 67 Year
  Sex: Male
  Weight: 99.7 kg

DRUGS (1)
  1. ALTEPLASE 100MG/ ML [Suspect]
     Indication: CEREBROVASCULAR ACCIDENT
     Dosage: WT BASED IV BOLUS
     Route: 040
     Dates: start: 20090304, end: 20090304

REACTIONS (5)
  - HAEMATOMA [None]
  - HAEMORRHAGE INTRACRANIAL [None]
  - HAEMORRHAGIC STROKE [None]
  - MENTAL STATUS CHANGES [None]
  - UNRESPONSIVE TO STIMULI [None]
